FAERS Safety Report 4278287-8 (Version None)
Quarter: 2004Q1

REPORT INFORMATION
  Report Type: 
  Country: None (occurrence: None)
  Receive Date: 20040121
  Receipt Date: 20040108
  Transmission Date: 20041129
  Serious: Yes (Hospitalization, Other)
  Sender: FDA-Public Use
  Company Number: JP_030901837

PATIENT
  Age: 75 Year
  Sex: Female
  Weight: 46 kg

DRUGS (5)
  1. GEMZAR [Suspect]
     Indication: LUNG ADENOCARCINOMA
     Dosage: 1000 MG/OTHER
     Route: 050
     Dates: start: 20030814
  2. NAVELBINE [Concomitant]
  3. NASEA (RAMOSETRON HYDROCHLORIDE) [Concomitant]
  4. OZEX (TOSUFLOXACIN TOSILATE) [Concomitant]
  5. LOXONIN (LOXOPROFEN SODIUM) [Concomitant]

REACTIONS (7)
  - ABDOMINAL DISCOMFORT [None]
  - CONSTIPATION [None]
  - NEUROGENIC BLADDER [None]
  - NEUTROPHIL COUNT DECREASED [None]
  - URINARY RETENTION [None]
  - URINARY TRACT OBSTRUCTION [None]
  - WHITE BLOOD CELL COUNT DECREASED [None]
